FAERS Safety Report 6111087-2 (Version None)
Quarter: 2009Q1

REPORT INFORMATION
  Report Type: 
  Country: None (occurrence: None)
  Receive Date: 20090311
  Receipt Date: 20090303
  Transmission Date: 20090719
  Serious: Yes (Hospitalization)
  Sender: FDA-Public Use
  Company Number: US-BAYER-200910312BCC

PATIENT
  Age: 47 Year
  Sex: Male
  Weight: 93 kg

DRUGS (3)
  1. ALEVE [Suspect]
     Indication: PAIN
  2. ADVIL [Suspect]
  3. ADVIL [Concomitant]

REACTIONS (4)
  - GINGIVAL BLEEDING [None]
  - IDIOPATHIC THROMBOCYTOPENIC PURPURA [None]
  - PETECHIAE [None]
  - PLATELET COUNT DECREASED [None]
